FAERS Safety Report 11251845 (Version 3)
Quarter: 2015Q3

REPORT INFORMATION
  Report Type: Spontaneous
  Country: US (occurrence: US)
  Receive Date: 20150708
  Receipt Date: 20150803
  Transmission Date: 20151125
  Serious: No
  Sender: FDA-Public Use
  Company Number: US-ELI_LILLY_AND_COMPANY-US201204000375

PATIENT
  Age: 64 Year
  Sex: Male

DRUGS (4)
  1. SYMBYAX [Suspect]
     Active Substance: FLUOXETINE HYDROCHLORIDE\OLANZAPINE
     Indication: DEPRESSION
     Dosage: 3/25 MG, QD
  2. ZYPREXA [Suspect]
     Active Substance: OLANZAPINE
  3. ZYPREXA ZYDIS [Suspect]
     Active Substance: OLANZAPINE
  4. PROZAC [Suspect]
     Active Substance: FLUOXETINE HYDROCHLORIDE

REACTIONS (7)
  - Blood pressure increased [Unknown]
  - Glucose tolerance impaired [Unknown]
  - Psychomotor hyperactivity [Unknown]
  - Energy increased [Unknown]
  - Weight increased [Unknown]
  - Food craving [Unknown]
  - Insomnia [Unknown]
